FAERS Safety Report 24810030 (Version 2)
Quarter: 2025Q3

REPORT INFORMATION
  Report Type: Report from Study
  Country: US (occurrence: US)
  Receive Date: 20250106
  Receipt Date: 20250821
  Transmission Date: 20251021
  Serious: No
  Sender: SUNOVION
  Company Number: US-SMPA-2024SPA006388AA

PATIENT
  Age: 70 Year
  Sex: Male

DRUGS (12)
  1. ORGOVYX [Suspect]
     Active Substance: RELUGOLIX
     Indication: Prostate cancer
     Dosage: 360 MG, SINGLE
     Route: 048
  2. ORGOVYX [Suspect]
     Active Substance: RELUGOLIX
     Dosage: 120 MG, QD
     Route: 048
  3. PREDNISONE [Suspect]
     Active Substance: PREDNISONE
     Indication: Prostate cancer
     Dosage: 5 MG, BID
  4. ABIRATERONE ACETATE [Concomitant]
     Active Substance: ABIRATERONE ACETATE
     Indication: Prostate cancer
     Dosage: 1000 MG, QD
  5. Morphin sulfate sintetica [Concomitant]
  6. HYDROMORPHONE [Concomitant]
     Active Substance: HYDROMORPHONE
  7. GABAPENTIN [Concomitant]
     Active Substance: GABAPENTIN
  8. KLONOPIN [Concomitant]
     Active Substance: CLONAZEPAM
  9. METOPROLOL [Concomitant]
     Active Substance: METOPROLOL
  10. FLOMAX [Concomitant]
     Active Substance: TAMSULOSIN HYDROCHLORIDE
  11. CALTRATE WITH VITAMIN D [Concomitant]
     Active Substance: CALCIUM CARBONATE\CHOLECALCIFEROL
  12. MAGNESIUM CITRATE [Concomitant]
     Active Substance: MAGNESIUM CITRATE

REACTIONS (3)
  - Weight gain poor [Unknown]
  - Nausea [Unknown]
  - Abdominal discomfort [Unknown]
